FAERS Safety Report 20809703 (Version 1)
Quarter: 2022Q2

REPORT INFORMATION
  Report Type: Report from Study
  Country: US (occurrence: US)
  Receive Date: 20220510
  Receipt Date: 20220510
  Transmission Date: 20220721
  Serious: Yes (Hospitalization)
  Sender: FDA-Public Use
  Company Number: US-TAKEDA-2022TUS029680

PATIENT
  Sex: Male
  Weight: 20.862 kg

DRUGS (20)
  1. HUMAN IMMUNOGLOBULIN G [Suspect]
     Active Substance: HUMAN IMMUNOGLOBULIN G
     Indication: Hypogammaglobulinaemia
     Dosage: 10 GRAM, Q2WEEKS
     Route: 058
  2. ACETAMINOPHEN [Concomitant]
     Active Substance: ACETAMINOPHEN
  3. DIPHENHYDRAMINE [Concomitant]
     Active Substance: DIPHENHYDRAMINE
  4. EPINEPHRINE [Concomitant]
     Active Substance: EPINEPHRINE
  5. Lmx [Concomitant]
  6. FUROSEMIDE [Concomitant]
     Active Substance: FUROSEMIDE
  7. TADALAFIL [Concomitant]
     Active Substance: TADALAFIL
  8. ASPIRIN [Concomitant]
     Active Substance: ASPIRIN
  9. PULMICORT TURBUHALER [Concomitant]
     Active Substance: BUDESONIDE
  10. NEXIUM [Concomitant]
     Active Substance: ESOMEPRAZOLE MAGNESIUM
  11. SULFAMETHOXAZOLE AND TRIMETHOPRIM [Concomitant]
     Active Substance: SULFAMETHOXAZOLE\TRIMETHOPRIM
  12. GAMMAGARD [Concomitant]
     Active Substance: HUMAN IMMUNOGLOBULIN G
  13. SPIRONOLACTONE [Concomitant]
     Active Substance: SPIRONOLACTONE
  14. MELATONIN [Concomitant]
     Active Substance: MELATONIN
  15. DIAZEPAM [Concomitant]
     Active Substance: DIAZEPAM
  16. LAMOTRIGINE [Concomitant]
     Active Substance: LAMOTRIGINE
  17. POLYETHYLENE GLYCOL [Concomitant]
     Active Substance: POLYETHYLENE GLYCOL
  18. ONDANSETRON [Concomitant]
     Active Substance: ONDANSETRON
  19. CLONAZEPAM [Concomitant]
     Active Substance: CLONAZEPAM
  20. OXCARBAZEPINE [Concomitant]
     Active Substance: OXCARBAZEPINE

REACTIONS (1)
  - Heart transplant [Unknown]
